FAERS Safety Report 20680060 (Version 1)
Quarter: 2022Q2

REPORT INFORMATION
  Report Type: Other
  Country: US (occurrence: None)
  Receive Date: 20220406
  Receipt Date: 20220406
  Transmission Date: 20220721
  Serious: No
  Sender: FDA-Public Use
  Company Number: US-ROCHE-3065971

PATIENT
  Sex: Female

DRUGS (21)
  1. OCREVUS [Suspect]
     Active Substance: OCRELIZUMAB
     Indication: Multiple sclerosis
     Dosage: ONGOING: YES
     Route: 065
     Dates: start: 20190614
  2. AUBAGIO [Concomitant]
     Active Substance: TERIFLUNOMIDE
  3. DULOXETINE [Concomitant]
     Active Substance: DULOXETINE
  4. CLONAZEPAM [Concomitant]
     Active Substance: CLONAZEPAM
  5. BACLOFEN [Concomitant]
     Active Substance: BACLOFEN
  6. GABAPENTIN [Concomitant]
     Active Substance: GABAPENTIN
  7. PHENYTOIN [Concomitant]
     Active Substance: PHENYTOIN
  8. TIZANIDINE [Concomitant]
     Active Substance: TIZANIDINE
  9. FASENRA [Concomitant]
     Active Substance: BENRALIZUMAB
  10. ALBUTEROL SULFATE [Concomitant]
     Active Substance: ALBUTEROL SULFATE
  11. LEVOTHYROXINE [Concomitant]
     Active Substance: LEVOTHYROXINE
  12. CETIRIZINE HYDROCHLORIDE [Concomitant]
     Active Substance: CETIRIZINE HYDROCHLORIDE
  13. SYMBICORT [Concomitant]
     Active Substance: BUDESONIDE\FORMOTEROL FUMARATE DIHYDRATE
  14. SINGULAIR [Concomitant]
     Active Substance: MONTELUKAST SODIUM
  15. CALCIUM CARBONATE [Concomitant]
     Active Substance: CALCIUM CARBONATE
  16. PREDNISONE [Concomitant]
     Active Substance: PREDNISONE
  17. FLUCONAZOLE [Concomitant]
     Active Substance: FLUCONAZOLE
  18. ROPINIROLE [Concomitant]
     Active Substance: ROPINIROLE
  19. IPRATROPIUM [Concomitant]
     Active Substance: IPRATROPIUM
  20. TECFIDERA [Concomitant]
     Active Substance: DIMETHYL FUMARATE
  21. ADDERALL [Concomitant]
     Active Substance: AMPHETAMINE ASPARTATE\AMPHETAMINE SULFATE\DEXTROAMPHETAMINE SACCHARATE\DEXTROAMPHETAMINE SULFATE

REACTIONS (4)
  - Ill-defined disorder [Not Recovered/Not Resolved]
  - COVID-19 [Recovered/Resolved]
  - Central nervous system lesion [Not Recovered/Not Resolved]
  - Rheumatoid arthritis [Not Recovered/Not Resolved]
